FAERS Safety Report 10369019 (Version 4)
Quarter: 2014Q4

REPORT INFORMATION
  Report Type: Report from Study
  Country: US (occurrence: US)
  Receive Date: 20140807
  Receipt Date: 20141015
  Transmission Date: 20150528
  Serious: Yes (Hospitalization, Other)
  Sender: FDA-Public Use
  Company Number: US-BAYER-2014-091988

PATIENT
  Age: 50 Year
  Sex: Male

DRUGS (3)
  1. STIVARGA [Suspect]
     Active Substance: REGORAFENIB
     Indication: RECTAL CANCER
     Dosage: 80 MG, DAILY
     Route: 048
     Dates: start: 2014
  2. STIVARGA [Suspect]
     Active Substance: REGORAFENIB
     Indication: RECTAL CANCER
     Dosage: DAILY DOSE 120 MG
     Route: 048
     Dates: start: 20140904
  3. STIVARGA [Suspect]
     Active Substance: REGORAFENIB
     Indication: RECTAL CANCER
     Dosage: 160 MG, QD
     Route: 048
     Dates: start: 20140605, end: 2014

REACTIONS (11)
  - Blister [None]
  - Neck mass [None]
  - Back pain [None]
  - Pain [None]
  - Abasia [None]
  - Pain in extremity [None]
  - Rash [Not Recovered/Not Resolved]
  - Surgery [None]
  - Gait disturbance [None]
  - Palmoplantar keratoderma [None]
  - Plantar erythema [None]

NARRATIVE: CASE EVENT DATE: 2014
